FAERS Safety Report 9308852 (Version 2)
Quarter: 2013Q2

REPORT INFORMATION
  Report Type: Spontaneous
  Country: IT (occurrence: IT)
  Receive Date: 20130524
  Receipt Date: 20130620
  Transmission Date: 20140414
  Serious: Yes (Hospitalization)
  Sender: FDA-Public Use
  Company Number: IT-ROCHE-1227717

PATIENT
  Age: 56 Year
  Sex: Female

DRUGS (2)
  1. VALIUM [Suspect]
     Indication: PRODUCT USED FOR UNKNOWN INDICATION
     Dosage: ORAL DROPS SOLUTION
     Route: 048
     Dates: start: 20130107, end: 20130107
  2. TAVOR (ITALY) [Suspect]
     Indication: PRODUCT USED FOR UNKNOWN INDICATION
     Route: 048
     Dates: start: 20130107, end: 20130107

REACTIONS (2)
  - Agitation [Not Recovered/Not Resolved]
  - Intentional self-injury [Not Recovered/Not Resolved]
